FAERS Safety Report 9267274 (Version 2)
Quarter: 2013Q3

REPORT INFORMATION
  Report Type: Report from Study
  Country: JP (occurrence: JP)
  Receive Date: 20130502
  Receipt Date: 20130816
  Transmission Date: 20140515
  Serious: Yes (Death, Hospitalization)
  Sender: FDA-Public Use
  Company Number: JP-TEVA-331669USA

PATIENT
  Age: 48 Year
  Sex: Male
  Weight: 55.4 kg

DRUGS (25)
  1. BENDAMUSTINE [Suspect]
     Indication: B-CELL LYMPHOMA
     Dosage: UID/QD
     Route: 042
     Dates: start: 20110209, end: 20110210
  2. BENDAMUSTINE [Suspect]
     Dosage: UID/QD
     Route: 042
     Dates: start: 20110316, end: 20110317
  3. BENDAMUSTINE [Suspect]
     Dosage: UID/QD
     Route: 042
     Dates: start: 20110414, end: 20110415
  4. BENDAMUSTINE [Suspect]
     Dosage: UID/QD
     Route: 042
     Dates: start: 20110516, end: 20110517
  5. RITUXIMAB [Suspect]
     Indication: LYMPHOMA
     Dosage: UNKNOWN/D
     Dates: start: 20110214, end: 20110214
  6. RITUXIMAB [Suspect]
     Dosage: UNKNOWN/D
     Dates: start: 20110308, end: 20110308
  7. RITUXIMAB [Suspect]
     Dosage: UNKNOWN/D
     Dates: start: 20110413, end: 20110413
  8. RITUXIMAB [Suspect]
     Dosage: UNKNOWN/D
     Dates: start: 20110513, end: 20110513
  9. RITUXIMAB [Suspect]
     Dosage: UNKNOWN/D
  10. FLUDARABINE PHOSPHATE [Suspect]
     Indication: LYMPHOMA
     Route: 042
     Dates: start: 200304, end: 2011
  11. FLUDARABINE PHOSPHATE [Suspect]
     Dosage: UNKNOWN/D
     Route: 042
     Dates: start: 20101007, end: 20101009
  12. ENDOXAN [Suspect]
     Indication: LYMPHOMA
     Dosage: UNKNOWN/D
     Route: 042
     Dates: start: 200304, end: 2011
  13. ENDOXAN [Suspect]
     Dosage: UNKNOWN/D
     Route: 042
     Dates: start: 20101007, end: 20101009
  14. ETOPOSIDE [Suspect]
     Indication: LYMPHOMA
     Dates: start: 200304, end: 2011
  15. BLEOMYCIN [Suspect]
     Indication: LYMPHOMA
     Dosage: UNKNOWN/D
  16. CYTARABINE [Suspect]
     Indication: LYMPHOMA
     Dosage: UNKNOWN/D
  17. VINCRISTINE [Suspect]
     Indication: LYMPHOMA
     Dosage: UNKNOWN/D
  18. METHOTREXATE [Suspect]
     Indication: LYMPHOMA
     Dosage: UNKNOWN/D
  19. ROXATIDINE ACETATE [Concomitant]
     Indication: PROPHYLAXIS
     Route: 048
  20. MAGNESIUM OXIDE [Concomitant]
     Indication: PROPHYLAXIS
     Route: 048
  21. LEVOGLUTAMIDE W/SODIUM GUALENATE [Concomitant]
  22. POVIDONE-IODINE [Concomitant]
     Indication: PROPHYLAXIS
  23. AMPHOTERICIN B [Concomitant]
     Indication: PROPHYLAXIS
  24. AMLODIPINE [Concomitant]
     Indication: HYPERTENSION
  25. SULFAMETHOXAZOLE W/TRIMETHOPRIM [Concomitant]
     Indication: PROPHYLAXIS
     Dosage: 2 TABLETS TWICE DAILY 2 TIMES A WEEK

REACTIONS (7)
  - Acute myeloid leukaemia [Fatal]
  - Myelodysplastic syndrome [Not Recovered/Not Resolved]
  - Platelet count decreased [Recovered/Resolved]
  - Neutrophil count decreased [Recovered/Resolved]
  - Viral infection [Recovered/Resolved]
  - Amylase increased [Recovered/Resolved]
  - Blood lactate dehydrogenase increased [Recovering/Resolving]
